FAERS Safety Report 19168684 (Version 1)
Quarter: 2021Q2

REPORT INFORMATION
  Report Type: Spontaneous
  Country: US (occurrence: US)
  Receive Date: 20210422
  Receipt Date: 20210422
  Transmission Date: 20210717
  Serious: Yes (Other)
  Sender: FDA-Public Use
  Company Number: US-MYLANLABS-2021M1023836

PATIENT
  Age: 23 Year
  Sex: Female

DRUGS (7)
  1. ETOPOSIDE. [Suspect]
     Active Substance: ETOPOSIDE
     Indication: PANCREATOBLASTOMA
     Dosage: UNK, CYCLE RECEIVED SIX CYCLES
     Route: 065
  2. DOXORUBICIN [Suspect]
     Active Substance: DOXORUBICIN
     Indication: CHEMOTHERAPY
  3. CISPLATIN. [Suspect]
     Active Substance: CISPLATIN
     Indication: PANCREATOBLASTOMA
     Dosage: UNK, CYCLE RECEIVED SIX CYCLES
     Route: 065
  4. ETOPOSIDE. [Suspect]
     Active Substance: ETOPOSIDE
     Indication: CHEMOTHERAPY
  5. CISPLATIN. [Suspect]
     Active Substance: CISPLATIN
     Indication: CHEMOTHERAPY
  6. DOXORUBICIN [Suspect]
     Active Substance: DOXORUBICIN
     Indication: PANCREATOBLASTOMA
     Dosage: UNK, CYCLE RECEIVED SIX CYCLES
     Route: 065
  7. CEFAZOLIN [Suspect]
     Active Substance: CEFAZOLIN
     Indication: STAPHYLOCOCCAL INFECTION
     Dosage: UNK
     Route: 065

REACTIONS (9)
  - Syncope [Unknown]
  - Normal newborn [Recovered/Resolved]
  - Hypotension [Unknown]
  - Nausea [Unknown]
  - Cardiac murmur [Unknown]
  - Tension headache [Unknown]
  - Tinnitus [Unknown]
  - Abdominal pain [Unknown]
  - Maternal exposure during pregnancy [Recovered/Resolved]
